FAERS Safety Report 21102419 (Version 9)
Quarter: 2022Q3

REPORT INFORMATION
  Report Type: Report from Study
  Country: CO (occurrence: None)
  Receive Date: 20220719
  Receipt Date: 20220830
  Transmission Date: 20221027
  Serious: Yes (Hospitalization)
  Sender: FDA-Public Use
  Company Number: CO-Eisai Medical Research-EC-2022-119363

PATIENT
  Age: 81 Year
  Sex: Male
  Weight: 76.4 kg

DRUGS (11)
  1. LENVATINIB [Suspect]
     Active Substance: LENVATINIB
     Indication: Renal cell carcinoma
     Dosage: FLUCTUATED DOSAGE STARTING AT 20 MG
     Route: 048
     Dates: start: 20220323, end: 20220710
  2. BELZUTIFAN [Suspect]
     Active Substance: BELZUTIFAN
     Indication: Renal cell carcinoma
     Dosage: FLUCTUATED DOSAGE STARTING AT 120 MG
     Route: 048
     Dates: start: 20220323, end: 20220710
  3. LOSARTAN [Concomitant]
     Active Substance: LOSARTAN
     Dates: start: 201201
  4. FOLIC ACID [Concomitant]
     Active Substance: FOLIC ACID
     Dates: start: 202101
  5. CALCIUM [Concomitant]
     Active Substance: CALCIUM
     Dates: start: 202101
  6. VITAMIN D NOS [Concomitant]
     Active Substance: VITAMIN D NOS
     Dates: start: 202101
  7. HYDROCHLOROTHIAZIDE [Concomitant]
     Active Substance: HYDROCHLOROTHIAZIDE
     Dates: start: 201201, end: 20220727
  8. PROWHEY [Concomitant]
     Dates: start: 20220608, end: 20220707
  9. DAYAMINERAL [MINERALS NOS;VITAMINS NOS] [Concomitant]
     Dosage: RINSE
     Dates: start: 20220608, end: 20220707
  10. LEVOTHYROXINE SODIUM [Concomitant]
     Active Substance: LEVOTHYROXINE SODIUM
     Dates: start: 20220616
  11. ERYTHROPOIETIN [Concomitant]
     Active Substance: ERYTHROPOIETIN
     Route: 058
     Dates: start: 20220629, end: 20220706

REACTIONS (1)
  - Hepatotoxicity [Recovered/Resolved]

NARRATIVE: CASE EVENT DATE: 20220711
